FAERS Safety Report 5623282-7 (Version None)
Quarter: 2008Q1

REPORT INFORMATION
  Report Type: 
  Country: None (occurrence: None)
  Receive Date: 20080208
  Receipt Date: 20080201
  Transmission Date: 20080703
  Serious: Yes (Life-Threatening, Hospitalization)
  Sender: FDA-Public Use
  Company Number: CLOF-1000075

PATIENT
  Age: 24 Year
  Sex: Female
  Weight: 78.2 kg

DRUGS (3)
  1. CLOFARABINE (CLOFARABINE) SOLUTION FOR INFUSION [Suspect]
     Indication: MYELOID LEUKAEMIA
     Dosage: 75 MG, QDX5; INTRAVENOUS
     Route: 042
     Dates: start: 20080117, end: 20080121
  2. CYTARABINE [Suspect]
     Indication: MYELOID LEUKAEMIA
     Dosage: 3760 , QDX5; INTRAVENOUS
     Route: 042
     Dates: start: 20080117, end: 20080121
  3. DEPO-PROVERA SUSPENSION/INJ [Concomitant]

REACTIONS (11)
  - ASTHENIA [None]
  - BACTERIAL INFECTION [None]
  - COUGH [None]
  - DIARRHOEA [None]
  - FLUID OVERLOAD [None]
  - HEADACHE [None]
  - HYPOTENSION [None]
  - HYPOXIA [None]
  - NEUTROPENIC INFECTION [None]
  - SINUS TACHYCARDIA [None]
  - VAGINAL HAEMORRHAGE [None]
